FAERS Safety Report 20222438 (Version 2)
Quarter: 2022Q1

REPORT INFORMATION
  Report Type: Spontaneous
  Country: NL (occurrence: NL)
  Receive Date: 20211223
  Receipt Date: 20220111
  Transmission Date: 20220424
  Serious: Yes (Death)
  Sender: FDA-Public Use
  Company Number: None

PATIENT
  Age: 85 Year
  Sex: Male
  Weight: 71.9 kg

DRUGS (13)
  1. DESLORATADINE [Suspect]
     Active Substance: DESLORATADINE
     Indication: Pruritus
     Dosage: 1X  PER DAY 1 PIECE
     Dates: start: 20211129
  2. MICONAZOLE NITRATE [Suspect]
     Active Substance: MICONAZOLE NITRATE
     Dosage: 2X PER DAY 1 DOSE
     Dates: start: 20211125
  3. PFIZER-BIONTECH COVID-19 VACCINE [Suspect]
     Active Substance: TOZINAMERAN
     Indication: COVID-19 immunisation
     Dosage: 1 DOSAGE FORM
     Dates: start: 20211129
  4. LEVOTHYROXINE SODIUM [Concomitant]
     Active Substance: LEVOTHYROXINE SODIUM
     Dosage: TABLET, 125 ?G (MICROGRAM)
  5. OMEPRAZOLE [Concomitant]
     Active Substance: OMEPRAZOLE
     Dosage: GASTRO RESISTANT CAPSULE, 40 MG (MILLIGRAM)
  6. COLD CREAM NATUREL [Concomitant]
     Dosage: CREAM
  7. ASPIRIN [Concomitant]
     Active Substance: ASPIRIN
     Dosage: TABLET, 80 MG (MILLIGRAM)
  8. CHOLECALCIFEROL [Concomitant]
     Active Substance: CHOLECALCIFEROL
     Dosage: TABLET, 800 UNITS
  9. POLYETHYLENE GLYCOLS [Concomitant]
     Active Substance: POLYETHYLENE GLYCOLS
     Dosage: ORAL SOLUTION, 1 GRAM PER GRAM
  10. METFORMIN HYDROCHLORIDE [Concomitant]
     Active Substance: METFORMIN HYDROCHLORIDE
     Dosage: TABLET, 500 MG (MILLIGRAM)
  11. SOLIFENACIN [Concomitant]
     Active Substance: SOLIFENACIN
     Dosage: TABLET, 5 MG (MILLIGRAM)
  12. HUMALOG [Concomitant]
     Active Substance: INSULIN LISPRO
     Dosage: INJECTION FLUID, 100 UNITS/ML(UNITS PER MILLILITER)
  13. SPERTI PREPARATION H [Concomitant]
     Dosage: OINTMENT FOR RECTAL USE, 30/10 MG/G (MILLIGRAM

REACTIONS (8)
  - Depressed level of consciousness [Fatal]
  - Oxygen saturation decreased [Fatal]
  - Malaise [Recovering/Resolving]
  - Fatigue [Not Recovered/Not Resolved]
  - Balance disorder [Not Recovered/Not Resolved]
  - Somnolence [Not Recovered/Not Resolved]
  - Pyrexia [Recovering/Resolving]
  - Hypophagia [Fatal]

NARRATIVE: CASE EVENT DATE: 20211130
